FAERS Safety Report 25003610 (Version 1)
Quarter: 2025Q1

REPORT INFORMATION
  Report Type: Spontaneous
  Country: US (occurrence: None)
  Receive Date: 20250221
  Receipt Date: 20250221
  Transmission Date: 20250408
  Serious: No
  Sender: FDA-CTU
  Company Number: None

PATIENT
  Age: 35 Year
  Sex: Male
  Weight: 99.9 kg

DRUGS (1)
  1. LUMASON [Suspect]
     Active Substance: SULFUR HEXAFLUORIDE
     Route: 042

REACTIONS (4)
  - Nausea [None]
  - Hyperhidrosis [None]
  - Heart rate decreased [None]
  - Feeling hot [None]

NARRATIVE: CASE EVENT DATE: 20250221
